FAERS Safety Report 8853099 (Version 6)
Quarter: 2013Q2

REPORT INFORMATION
  Report Type: Report from Study
  Country: JP (occurrence: JP)
  Receive Date: 20121022
  Receipt Date: 20130424
  Transmission Date: 20140414
  Serious: Yes (Disabling, Other)
  Sender: FDA-Public Use
  Company Number: JP-ROCHE-1143963

PATIENT
  Age: 74 Year
  Sex: Male

DRUGS (15)
  1. RANIBIZUMAB [Suspect]
     Indication: POLYPOIDAL CHOROIDAL VASCULOPATHY
     Route: 050
     Dates: start: 20090610
  2. RANIBIZUMAB [Suspect]
     Route: 050
     Dates: start: 20090708
  3. RANIBIZUMAB [Suspect]
     Route: 050
     Dates: start: 20090803
  4. RANIBIZUMAB [Suspect]
     Route: 050
     Dates: start: 20090903
  5. RANIBIZUMAB [Suspect]
     Route: 050
     Dates: start: 20091104
  6. RANIBIZUMAB [Suspect]
     Route: 050
     Dates: start: 20091203
  7. RANIBIZUMAB [Suspect]
     Route: 050
     Dates: start: 20100107
  8. RANIBIZUMAB [Suspect]
     Route: 050
     Dates: start: 20100218
  9. RANIBIZUMAB [Suspect]
     Route: 050
     Dates: start: 20100527
  10. RANIBIZUMAB [Suspect]
     Route: 050
     Dates: start: 20100818
  11. RANIBIZUMAB [Suspect]
     Route: 050
     Dates: start: 20110324
  12. VERTEPORFIN [Suspect]
     Indication: POLYPOIDAL CHOROIDAL VASCULOPATHY
     Route: 042
     Dates: start: 20090615
  13. VERTEPORFIN [Suspect]
     Route: 042
     Dates: start: 20100308
  14. VERTEPORFIN [Suspect]
     Route: 042
     Dates: start: 20110328
  15. VIGAMOX [Concomitant]

REACTIONS (5)
  - Polypoidal choroidal vasculopathy [Recovered/Resolved]
  - Detachment of retinal pigment epithelium [Recovered/Resolved]
  - Retinal haemorrhage [Recovered/Resolved]
  - Visual acuity reduced [Not Recovered/Not Resolved]
  - Inappropriate schedule of drug administration [Unknown]
